FAERS Safety Report 11262366 (Version 1)
Quarter: 2015Q3

REPORT INFORMATION
  Report Type: Spontaneous
  Country: US (occurrence: US)
  Receive Date: 20150710
  Receipt Date: 20150710
  Transmission Date: 20151125
  Serious: No
  Sender: FDA-Public Use
  Company Number: US-PURDUE-USA-2015-0123446

PATIENT
  Age: 70 Year
  Sex: Male

DRUGS (1)
  1. BUTRANS [Suspect]
     Active Substance: BUPRENORPHINE
     Indication: TRIGEMINAL NEURALGIA
     Dosage: 10 MCG/HR, WEEKLY
     Route: 062
     Dates: start: 20150510, end: 20150513

REACTIONS (4)
  - Fatigue [Unknown]
  - Dizziness [Unknown]
  - Dysuria [Unknown]
  - Somnolence [Unknown]

NARRATIVE: CASE EVENT DATE: 20150511
